FAERS Safety Report 5379118-5 (Version None)
Quarter: 2007Q3

REPORT INFORMATION
  Report Type: 
  Country: None (occurrence: None)
  Receive Date: 20070705
  Receipt Date: 20070629
  Transmission Date: 20080115
  Serious: Yes (Other)
  Sender: FDA-Public Use
  Company Number: AR-BRISTOL-MYERS SQUIBB COMPANY-13769658

PATIENT
  Age: 54 Year
  Sex: Female

DRUGS (4)
  1. BLINDED: IPILIMUMAB [Suspect]
     Indication: MALIGNANT MELANOMA
     Route: 042
     Dates: start: 20070409
  2. BLINDED: PLACEBO [Suspect]
     Indication: MALIGNANT MELANOMA
     Route: 042
     Dates: start: 20070409
  3. DACARBAZINE [Suspect]
     Indication: MALIGNANT MELANOMA
     Route: 042
     Dates: start: 20070409
  4. IBUPROFEN [Concomitant]
     Dates: start: 20070201

REACTIONS (1)
  - TRANSAMINASES INCREASED [None]
